FAERS Safety Report 9912966 (Version 1)
Quarter: 2014Q1

REPORT INFORMATION
  Report Type: Spontaneous
  Country: DE (occurrence: None)
  Receive Date: 20140214
  Receipt Date: 20140214
  Transmission Date: 20141002
  Serious: Yes (Hospitalization)
  Sender: FDA-Public Use
  Company Number: FK201400477

PATIENT
  Age: 28 Year
  Sex: Female

DRUGS (1)
  1. CLINDAMYCIN (MANUFACTURER UNKNOWN) (CLINDAMYCIN) (CLINDAMYCIN) [Suspect]
     Indication: DENTAL CARE
     Route: 048
     Dates: start: 20140109, end: 20140112

REACTIONS (6)
  - Drug-induced liver injury [None]
  - Acute hepatic failure [None]
  - Somnolence [None]
  - Vomiting [None]
  - Nausea [None]
  - Jaundice [None]
